FAERS Safety Report 8079801-7 (Version None)
Quarter: 2012Q1

REPORT INFORMATION
  Report Type: 
  Country: None (occurrence: None)
  Receive Date: 20120124
  Receipt Date: 20120110
  Transmission Date: 20120608
  Serious: Yes (Other)
  Sender: FDA-Public Use
  Company Number: 2012MA000429

PATIENT
  Sex: Female
  Weight: 62.5964 kg

DRUGS (35)
  1. ZOLOFT [Concomitant]
  2. GI COCKTAIL [Concomitant]
  3. METOCLOPRAMIDE [Suspect]
     Indication: IMPAIRED GASTRIC EMPTYING
     Dosage: 10 MG
     Dates: start: 20060616, end: 20090109
  4. SKELAXIN [Concomitant]
  5. TRAMADOL HYDROCHLORIDE AND ACETAMINOPHEN [Concomitant]
  6. PREVPAC [Concomitant]
  7. TOBRADEX [Concomitant]
  8. MIRAPEX [Concomitant]
  9. PROPRANOLOL [Concomitant]
  10. CARBIDOPA LEVIDOPA [Concomitant]
  11. OMEPRAZOLE [Concomitant]
  12. ZYRTEC [Concomitant]
  13. MUCINEX [Concomitant]
  14. FLUOROURACIL [Concomitant]
  15. CLONIDINE [Concomitant]
  16. PREMARIN [Concomitant]
  17. FISH OIL [Concomitant]
  18. REQUIP [Concomitant]
  19. NEURONTIN [Concomitant]
  20. GLUCOSAMINE [Concomitant]
  21. CATAPRES-TTS-1 [Concomitant]
  22. LOVAZA [Concomitant]
  23. MAXZIDE [Concomitant]
  24. MILK OF MAGNESIA TAB [Concomitant]
  25. ZEGERID [Concomitant]
  26. NAPROXEN (ALEVE) [Concomitant]
  27. BENICAR HCT [Concomitant]
  28. ZELNORM [Concomitant]
  29. CIPROFLOXACIN [Concomitant]
  30. DIOVAN [Concomitant]
  31. ASCORBIC ACID [Concomitant]
  32. BEXTRA [Concomitant]
  33. ASPIRIN [Concomitant]
  34. ACIPHEX [Concomitant]
  35. AUGMENTIN '125' [Concomitant]

REACTIONS (68)
  - EMOTIONAL DISORDER [None]
  - ABDOMINAL PAIN UPPER [None]
  - GALLBLADDER DISORDER [None]
  - POOR QUALITY SLEEP [None]
  - DEPRESSED MOOD [None]
  - TEMPOROMANDIBULAR JOINT SYNDROME [None]
  - WEIGHT DECREASED [None]
  - MOVEMENT DISORDER [None]
  - COLONIC POLYP [None]
  - BLOOD GLUCOSE INCREASED [None]
  - AKATHISIA [None]
  - FOREIGN BODY [None]
  - ARTHRALGIA [None]
  - DEATH OF RELATIVE [None]
  - ERUCTATION [None]
  - TREMOR [None]
  - GRIMACING [None]
  - INJURY [None]
  - ERYTHEMA [None]
  - SCIATICA [None]
  - ANXIETY [None]
  - GASTROOESOPHAGEAL REFLUX DISEASE [None]
  - FATIGUE [None]
  - EPISCLERITIS [None]
  - CONDITION AGGRAVATED [None]
  - FAMILY STRESS [None]
  - HOT FLUSH [None]
  - HYPERLIPIDAEMIA [None]
  - DEPRESSION [None]
  - CHEST PAIN [None]
  - CHEST DISCOMFORT [None]
  - SPEECH DISORDER [None]
  - OROPHARYNGEAL PAIN [None]
  - RHINORRHOEA [None]
  - BLEPHARITIS [None]
  - ECONOMIC PROBLEM [None]
  - PAIN IN EXTREMITY [None]
  - BACK PAIN [None]
  - ABDOMINAL DISCOMFORT [None]
  - ORAL DISORDER [None]
  - SINUSITIS [None]
  - OCULAR HYPERAEMIA [None]
  - OSTEOPENIA [None]
  - BLOOD UREA INCREASED [None]
  - TARDIVE DYSKINESIA [None]
  - RESTLESS LEGS SYNDROME [None]
  - MUSCULOSKELETAL PAIN [None]
  - MASTICATION DISORDER [None]
  - BRONCHITIS [None]
  - BLOOD CHOLESTEROL INCREASED [None]
  - BLOOD FOLATE INCREASED [None]
  - EXTRAPYRAMIDAL DISORDER [None]
  - MENOPAUSAL SYMPTOMS [None]
  - STRESS [None]
  - DYSPEPSIA [None]
  - EUSTACHIAN TUBE DYSFUNCTION [None]
  - APHAGIA [None]
  - DYSGRAPHIA [None]
  - COUGH [None]
  - SYNOVIAL CYST [None]
  - HYPERTONIA [None]
  - FIBROCYSTIC BREAST DISEASE [None]
  - PALPITATIONS [None]
  - RESTLESSNESS [None]
  - EAR PAIN [None]
  - CONSTIPATION [None]
  - MASKED FACIES [None]
  - LACRIMATION INCREASED [None]
